FAERS Safety Report 8992031 (Version 1)
Quarter: 2012Q4

REPORT INFORMATION
  Report Type: 
  Country: US (occurrence: US)
  Receive Date: 20121231
  Receipt Date: 20121231
  Transmission Date: 20130627
  Serious: No
  Sender: FDA-Public Use
  Company Number: PHEH2012US025549

PATIENT
  Age: 61 Year
  Sex: Male

DRUGS (14)
  1. TASIGNA [Suspect]
     Indication: CHRONIC MYELOID LEUKAEMIA
     Dosage: 600 mg, QD
     Route: 048
     Dates: start: 20100127
  2. ONDANSETRON [Concomitant]
  3. COZAAR [Concomitant]
  4. CARTIA XT [Concomitant]
  5. BETAMETHASONE [Concomitant]
  6. ATENOLOL [Concomitant]
  7. FLUOXETINE [Concomitant]
  8. CRESTOR [Concomitant]
  9. METAMUCIL [Concomitant]
  10. MVI [Concomitant]
  11. ASPIRIN [Concomitant]
  12. BENADRYL /00647601/ [Concomitant]
  13. PROCHLORPERAZINE [Concomitant]
  14. DILTIAZEM [Concomitant]

REACTIONS (1)
  - Abdominal discomfort [Not Recovered/Not Resolved]
